FAERS Safety Report 8311473-6 (Version None)
Quarter: 2012Q2

REPORT INFORMATION
  Report Type: 
  Country: None (occurrence: None)
  Receive Date: 20120425
  Receipt Date: 20120423
  Transmission Date: 20120825
  Serious: Yes (Death)
  Sender: FDA-Public Use
  Company Number: PHHY2012EC034840

PATIENT
  Sex: Male

DRUGS (1)
  1. DIOVAN [Suspect]
     Indication: HYPERTENSION
     Dosage: 160 MG, DAILY
     Route: 048
     Dates: start: 20110624

REACTIONS (4)
  - PALLOR [None]
  - CHEST PAIN [None]
  - MYOCARDIAL INFARCTION [None]
  - ALTERED STATE OF CONSCIOUSNESS [None]
